FAERS Safety Report 6822129-0 (Version None)
Quarter: 2010Q3

REPORT INFORMATION
  Report Type: 
  Country: None (occurrence: None)
  Receive Date: 20100708
  Receipt Date: 20100629
  Transmission Date: 20110219
  Serious: Yes (Disabling)
  Sender: FDA-Public Use
  Company Number: PT-ASTRAZENECA-2010SE30679

PATIENT
  Age: 716 Month
  Sex: Male
  Weight: 76 kg

DRUGS (1)
  1. CANDESARTAN CILEXETIL/HYDROCHLOROTHIAZIDE (ATACAND HCT) [Suspect]
     Indication: PULMONARY ARTERIAL HYPERTENSION
     Dosage: 16 MG + 12.5 MG DAILY
     Route: 048
     Dates: start: 20090129

REACTIONS (6)
  - ARTHRALGIA [None]
  - ARTHRITIS [None]
  - ERYTHEMA [None]
  - JOINT STIFFNESS [None]
  - JOINT WARMTH [None]
  - PAIN IN EXTREMITY [None]
